FAERS Safety Report 4825339-7 (Version None)
Quarter: 2005Q4

REPORT INFORMATION
  Report Type: 
  Country: None (occurrence: None)
  Receive Date: 20051111
  Receipt Date: 20051102
  Transmission Date: 20060501
  Serious: Yes (Life-Threatening, Other)
  Sender: FDA-Public Use
  Company Number: EMADSS2000002089

PATIENT
  Sex: Male

DRUGS (1)
  1. DAKTARIN [Suspect]
     Indication: ORAL CANDIDIASIS
     Route: 048
     Dates: start: 20001108, end: 20001112

REACTIONS (3)
  - APNOEA [None]
  - CYANOSIS [None]
  - HYPOTONIA [None]
